FAERS Safety Report 4562704-X (Version None)
Quarter: 2005Q1

REPORT INFORMATION
  Report Type: 
  Country: None (occurrence: None)
  Receive Date: 20050124
  Receipt Date: 20041216
  Transmission Date: 20050727
  Serious: Yes (Other)
  Sender: FDA-Public Use
  Company Number: 2004116072

PATIENT
  Sex: Male

DRUGS (2)
  1. IRINOTECAN HCL [Suspect]
     Indication: ILL-DEFINED DISORDER
  2. ONDANSETRON HCL [Concomitant]

REACTIONS (2)
  - ANGIONEUROTIC OEDEMA [None]
  - RASH [None]
